FAERS Safety Report 8180400-7 (Version None)
Quarter: 2012Q1

REPORT INFORMATION
  Report Type: 
  Country: None (occurrence: None)
  Receive Date: 20120302
  Receipt Date: 20120222
  Transmission Date: 20120608
  Serious: Yes (Other)
  Sender: FDA-Public Use
  Company Number: JP-SANOFI-AVENTIS-2012SA012627

PATIENT
  Age: 58 Year
  Sex: Female
  Weight: 41 kg

DRUGS (1)
  1. FUROSEMIDE [Suspect]
     Route: 065

REACTIONS (4)
  - HYPOKALAEMIA [None]
  - NEPHROCALCINOSIS [None]
  - HYPERCALCIURIA [None]
  - RENAL CYST [None]
